FAERS Safety Report 12505589 (Version 1)
Quarter: 2016Q2

REPORT INFORMATION
  Report Type: Spontaneous
  Country: US (occurrence: US)
  Receive Date: 20160628
  Receipt Date: 20160628
  Transmission Date: 20160815
  Serious: Yes (Hospitalization)
  Sender: FDA-Public Use
  Company Number: US-PFIZER INC-2004223903US

PATIENT
  Age: 16 Year
  Sex: Female

DRUGS (4)
  1. AZITHROMYCIN ANHYDROUS. [Concomitant]
     Active Substance: AZITHROMYCIN ANHYDROUS
  2. PROMETHAZINE HCL [Suspect]
     Active Substance: PROMETHAZINE HYDROCHLORIDE
     Route: 048
  3. CODEINE [Suspect]
     Active Substance: CODEINE
     Route: 048
  4. PROMETHAZINE HCL [Suspect]
     Active Substance: PROMETHAZINE HYDROCHLORIDE
     Route: 051

REACTIONS (2)
  - Psychotic disorder [Recovered/Resolved]
  - Hallucination [Recovered/Resolved]
